FAERS Safety Report 5894116-0 (Version None)
Quarter: 2008Q3

REPORT INFORMATION
  Report Type: 
  Country: None (occurrence: None)
  Receive Date: 20080923
  Receipt Date: 20080709
  Transmission Date: 20090109
  Serious: No
  Sender: FDA-Public Use
  Company Number: US-ASTRAZENECA-2008UW00800

PATIENT
  Age: 15095 Day
  Sex: Male
  Weight: 159.1 kg

DRUGS (10)
  1. SEROQUEL [Suspect]
     Indication: BIPOLAR DISORDER
     Route: 048
     Dates: start: 20020201, end: 20031101
  2. SEROQUEL [Suspect]
     Indication: DEPRESSION
     Route: 048
     Dates: start: 20020201, end: 20031101
  3. SEROQUEL [Suspect]
     Indication: HALLUCINATION, AUDITORY
     Route: 048
     Dates: start: 20020201, end: 20031101
  4. RISPERDAL [Concomitant]
  5. GABAPENTIN [Concomitant]
  6. LITHIUM CARBONATE [Concomitant]
  7. CLONAZEPAM [Concomitant]
  8. CYMBALTA [Concomitant]
  9. BUSPIRONE HCL [Concomitant]
  10. WELLBUTRIN XL [Concomitant]

REACTIONS (2)
  - DIABETES MELLITUS [None]
  - OBESITY [None]
